FAERS Safety Report 8520395-7 (Version None)
Quarter: 2012Q3

REPORT INFORMATION
  Report Type: 
  Country: None (occurrence: None)
  Receive Date: 20120719
  Receipt Date: 20120709
  Transmission Date: 20120928
  Serious: Yes (Other)
  Sender: FDA-Public Use
  Company Number: US-ASTELLAS-2012US006095

PATIENT

DRUGS (4)
  1. VESICARE [Suspect]
     Dosage: 10 MG, UID/QD
     Route: 048
     Dates: start: 20120601, end: 20120708
  2. LISINOPRIL [Concomitant]
     Indication: BLOOD PRESSURE
     Dosage: 10 MG, UID/QD
     Route: 048
  3. VESICARE [Suspect]
     Indication: HYPERTONIC BLADDER
     Dosage: 5 MG, UID/QD
     Route: 048
     Dates: start: 20120601, end: 20120601
  4. ASPIRIN [Concomitant]
     Indication: PRODUCT USED FOR UNKNOWN INDICATION
     Dosage: 81 MG, UID/QD
     Route: 048

REACTIONS (8)
  - THIRST [None]
  - ASTHENIA [None]
  - CHEST PAIN [None]
  - HEADACHE [None]
  - CONTUSION [None]
  - PAIN IN EXTREMITY [None]
  - OEDEMA PERIPHERAL [None]
  - DRY MOUTH [None]
